FAERS Safety Report 14246813 (Version 3)
Quarter: 2020Q3

REPORT INFORMATION
  Report Type: Spontaneous
  Country: US (occurrence: US)
  Receive Date: 20171204
  Receipt Date: 20200803
  Transmission Date: 20201102
  Serious: No
  Sender: FDA-Public Use
  Company Number: US-PFIZER INC-2017516556

PATIENT
  Age: 46 Year
  Sex: Female

DRUGS (2)
  1. LYRICA [Suspect]
     Active Substance: PREGABALIN
     Dosage: 600 MG, DAILY (2 TABS DAILY OF THE 300 MG)
  2. LYRICA [Suspect]
     Active Substance: PREGABALIN
     Dosage: 300 MG, TWICE DAILY (300 MG IN THE MORNING AND 300 MG IN THE EVENING)

REACTIONS (2)
  - Product prescribing error [Unknown]
  - Drug hypersensitivity [Unknown]
